FAERS Safety Report 20789475 (Version 2)
Quarter: 2022Q2

REPORT INFORMATION
  Report Type: Report from Study
  Country: HK (occurrence: HK)
  Receive Date: 20220505
  Receipt Date: 20220513
  Transmission Date: 20220721
  Serious: Yes (Death, Other)
  Sender: FDA-Public Use
  Company Number: HK-NOVARTISPH-NVSC2022HK102801

PATIENT
  Age: 10 Year
  Sex: Female
  Weight: 30.5 kg

DRUGS (2)
  1. ALPELISIB [Suspect]
     Active Substance: ALPELISIB
     Indication: Glioblastoma
     Dosage: 50 MG, QD
     Route: 048
     Dates: start: 20210108
  2. ALPELISIB [Suspect]
     Active Substance: ALPELISIB
     Indication: Glioma

REACTIONS (2)
  - Malignant neoplasm progression [Fatal]
  - Hydrocephalus [Unknown]

NARRATIVE: CASE EVENT DATE: 20210822
